FAERS Safety Report 14373969 (Version 1)
Quarter: 2018Q1

REPORT INFORMATION
  Report Type: Report from Study
  Country: None (occurrence: US)
  Receive Date: 20180111
  Receipt Date: 20180111
  Transmission Date: 20180509
  Serious: Yes (Other)
  Sender: FDA-Public Use
  Company Number: US-ABBVIE-17K-163-2192043-00

PATIENT
  Sex: Female

DRUGS (2)
  1. HUMIRA [Suspect]
     Active Substance: ADALIMUMAB
     Indication: PRODUCT USED FOR UNKNOWN INDICATION
     Route: 058
     Dates: end: 201701
  2. TURMERIC [Concomitant]
     Active Substance: HERBALS\TURMERIC
     Indication: PRODUCT USED FOR UNKNOWN INDICATION

REACTIONS (7)
  - Chronic kidney disease [Unknown]
  - Rheumatoid arthritis [Unknown]
  - Lower limb fracture [Unknown]
  - Liver function test abnormal [Unknown]
  - Drug effect incomplete [Unknown]
  - Fall [Unknown]
  - Renal impairment [Unknown]
